FAERS Safety Report 9855235 (Version 4)
Quarter: 2017Q1

REPORT INFORMATION
  Report Type: Spontaneous
  Country: US (occurrence: US)
  Receive Date: 20140130
  Receipt Date: 20170227
  Transmission Date: 20170429
  Serious: Yes (Life-Threatening)
  Sender: FDA-Public Use
  Company Number: US-BAYER-2014-014139

PATIENT
  Age: 24 Year
  Sex: Female
  Weight: 58.96 kg

DRUGS (5)
  1. MISOPROSTOL. [Concomitant]
     Active Substance: MISOPROSTOL
     Dosage: 100 ?G, UNK
  2. MIRENA [Suspect]
     Active Substance: LEVONORGESTREL
     Indication: CONTRACEPTION
     Dosage: UNK
  3. IBUPROFEN. [Concomitant]
     Active Substance: IBUPROFEN
     Dosage: 800 MG, UNK
     Route: 048
  4. HYDROCODONE W/ACETAMINOPHEN [Concomitant]
     Active Substance: ACETAMINOPHEN\HYDROCODONE BITARTRATE
     Route: 048
  5. MIRENA [Suspect]
     Active Substance: LEVONORGESTREL
     Indication: CONTRACEPTION
     Dosage: 20 MCG/24HR, CONT
     Route: 015
     Dates: start: 20100715, end: 20120321

REACTIONS (14)
  - Device difficult to use [None]
  - Pain [None]
  - Anxiety [None]
  - Vaginal haemorrhage [None]
  - Dyspareunia [None]
  - General physical health deterioration [None]
  - Anhedonia [None]
  - Abdominal pain lower [None]
  - Device use issue [None]
  - Depression [None]
  - Emotional distress [None]
  - Pelvic pain [None]
  - Uterine perforation [None]
  - Injury [None]

NARRATIVE: CASE EVENT DATE: 20100715
